FAERS Safety Report 21867211 (Version 8)
Quarter: 2025Q4

REPORT INFORMATION
  Report Type: Report from Study
  Country: CH (occurrence: CH)
  Receive Date: 20230116
  Receipt Date: 20251020
  Transmission Date: 20260118
  Serious: Yes (Hospitalization)
  Sender: PFIZER
  Company Number: CH-PFM-2023-00238

PATIENT
  Age: 69 Year
  Sex: Female

DRUGS (11)
  1. ENCORAFENIB [Suspect]
     Active Substance: ENCORAFENIB
     Indication: Metastatic malignant melanoma
     Dosage: 450 MG, QD (1/DAY)
     Route: 048
     Dates: start: 20221006, end: 20221026
  2. ENCORAFENIB [Suspect]
     Active Substance: ENCORAFENIB
     Indication: BRAF V600E mutation positive
     Dosage: 450 MG, QD (1/DAY
     Route: 048
     Dates: start: 20221102, end: 20221114
  3. ENCORAFENIB [Suspect]
     Active Substance: ENCORAFENIB
     Dosage: 450 MG, QD (1/DAY
     Route: 048
     Dates: start: 20221212, end: 20221230
  4. ENCORAFENIB [Suspect]
     Active Substance: ENCORAFENIB
     Dosage: 225 MG, QD (1/DAY)
     Route: 048
     Dates: start: 20230126
  5. ENCORAFENIB [Suspect]
     Active Substance: ENCORAFENIB
     Dosage: 450 MG, QD (1/DAY
     Route: 048
     Dates: start: 20230128, end: 20230201
  6. BINIMETINIB [Suspect]
     Active Substance: BINIMETINIB
     Indication: Metastatic malignant melanoma
     Dosage: 45 MG, BID (2/DAY)
     Route: 048
     Dates: start: 20221006, end: 20221026
  7. BINIMETINIB [Suspect]
     Active Substance: BINIMETINIB
     Indication: BRAF V600E mutation positive
     Dosage: 45 MG, BID (2/DAY
     Route: 048
     Dates: start: 20221102, end: 20221114
  8. BINIMETINIB [Suspect]
     Active Substance: BINIMETINIB
     Dosage: 45 MG, BID (2/DAY
     Route: 048
     Dates: start: 20221216, end: 20221230
  9. BINIMETINIB [Suspect]
     Active Substance: BINIMETINIB
     Dosage: 30 MG, BID (2/DAY)
     Route: 048
     Dates: start: 20230127
  10. BINIMETINIB [Suspect]
     Active Substance: BINIMETINIB
     Dosage: 45 MG, BID (2/DAY
     Route: 048
     Dates: start: 20230128, end: 20230201
  11. PANTOZOL [ERYTHROMYCIN ETHYLSUCCINATE;SULFAFURAZOLE] [Concomitant]
     Indication: Prophylaxis
     Dosage: UNK
     Route: 065
     Dates: start: 20221019

REACTIONS (1)
  - Hepatitis viral [Recovered/Resolved]

NARRATIVE: CASE EVENT DATE: 20221025
